FAERS Safety Report 21218909 (Version 1)
Quarter: 2022Q3

REPORT INFORMATION
  Report Type: Spontaneous
  Country: US (occurrence: US)
  Receive Date: 20220816
  Receipt Date: 20220816
  Transmission Date: 20221027
  Serious: No
  Sender: FDA-Public Use
  Company Number: US-NOVARTISTESTPH-NVSC2022US185085

PATIENT
  Sex: Male

DRUGS (6)
  1. LOSARTAN POTASSIUM [Suspect]
     Active Substance: LOSARTAN POTASSIUM
     Indication: Blood pressure increased
     Dosage: 1.5 DOSAGE FORM
     Route: 065
  2. LOSARTAN POTASSIUM [Suspect]
     Active Substance: LOSARTAN POTASSIUM
     Dosage: 1 DOSAGE FORM
     Route: 065
  3. RELUGOLIX [Suspect]
     Active Substance: RELUGOLIX
     Indication: Prostate cancer
     Dosage: 360 MG, QD
     Route: 048
     Dates: start: 20220603, end: 20220603
  4. RELUGOLIX [Suspect]
     Active Substance: RELUGOLIX
     Dosage: 120 MG, QD
     Route: 048
     Dates: start: 20220604
  5. RELUGOLIX [Suspect]
     Active Substance: RELUGOLIX
     Dosage: UNK
     Route: 048
  6. ENZALUTAMIDE [Suspect]
     Active Substance: ENZALUTAMIDE
     Indication: Product used for unknown indication
     Dosage: UNK
     Route: 065

REACTIONS (9)
  - Blood pressure increased [Not Recovered/Not Resolved]
  - Chest pain [Unknown]
  - Feeling abnormal [Unknown]
  - Head discomfort [Recovered/Resolved]
  - Hot flush [Unknown]
  - Prostatic specific antigen increased [Unknown]
  - Scan abnormal [Unknown]
  - Fatigue [Unknown]
  - Product dose omission in error [Recovered/Resolved]
